FAERS Safety Report 4807066-5 (Version None)
Quarter: 2005Q4

REPORT INFORMATION
  Report Type: 
  Country: None (occurrence: None)
  Receive Date: 20051019
  Receipt Date: 20051010
  Transmission Date: 20060501
  Serious: Yes (Hospitalization)
  Sender: FDA-Public Use
  Company Number: 2005-08-0257

PATIENT
  Age: 59 Year
  Sex: Male
  Weight: 83 kg

DRUGS (3)
  1. FLUTAMIDE [Suspect]
     Indication: PROSTATE CANCER
     Dosage: 750 MG QD ORAL
     Route: 048
     Dates: start: 20050403, end: 20050527
  2. DECAPEPTYL DEPOT [Suspect]
     Indication: PROSTATE CANCER
     Dosage: 3 MG BID INTRAMUSCULAR
     Route: 030
     Dates: start: 20050508, end: 20050508
  3. ATENOLOL [Concomitant]

REACTIONS (8)
  - ABDOMINAL PAIN UPPER [None]
  - ARTERIAL OCCLUSIVE DISEASE [None]
  - ARTERY DISSECTION [None]
  - BLOOD LACTIC ACID DECREASED [None]
  - CONDITION AGGRAVATED [None]
  - HYPERTENSION [None]
  - INTESTINAL INFARCTION [None]
  - MESENTERIC OCCLUSION [None]
